FAERS Safety Report 10728620 (Version 1)
Quarter: 2015Q1

REPORT INFORMATION
  Report Type: Spontaneous
  Country: US (occurrence: US)
  Receive Date: 20150122
  Receipt Date: 20150122
  Transmission Date: 20150721
  Serious: Yes (Other)
  Sender: FDA-Public Use
  Company Number: US-AMGEN-USASP2015004934

PATIENT
  Age: 75 Year
  Sex: Female

DRUGS (1)
  1. ENBREL [Suspect]
     Active Substance: ETANERCEPT
     Indication: PSORIATIC ARTHROPATHY
     Dosage: 50 MG, QWK
     Route: 065
     Dates: start: 20130501, end: 201412

REACTIONS (4)
  - Bronchitis [Not Recovered/Not Resolved]
  - Psoriatic arthropathy [Not Recovered/Not Resolved]
  - Malaise [Recovered/Resolved]
  - Pneumonia [Recovered/Resolved]

NARRATIVE: CASE EVENT DATE: 20141221
